FAERS Safety Report 10027772 (Version 2)
Quarter: 2014Q1

REPORT INFORMATION
  Report Type: Spontaneous
  Country: US (occurrence: US)
  Receive Date: 20140321
  Receipt Date: 20140328
  Transmission Date: 20141002
  Serious: Yes (Other)
  Sender: FDA-Public Use
  Company Number: US-PURDUE-USA-2014-0112084

PATIENT
  Age: 54 Year
  Sex: Female
  Weight: 56.69 kg

DRUGS (9)
  1. DRONABINOL CAPSULES [Suspect]
     Indication: COMPLEX REGIONAL PAIN SYNDROME
     Dosage: 7.5 MG, TID
     Route: 048
     Dates: start: 201206, end: 201211
  2. DRONABINOL CAPSULES [Suspect]
     Dosage: 5 MG, Q6- 8H
     Dates: start: 2010, end: 201211
  3. MARINOL /00897601/ [Suspect]
     Indication: PRODUCT USED FOR UNKNOWN INDICATION
     Dosage: 7.5 UNK, UNK
  4. MARINOL /00897601/ [Suspect]
     Dosage: 2.5 MG, TID
     Dates: start: 20121108
  5. MARIJUANA [Suspect]
     Indication: PAIN
  6. CLONIDINE [Concomitant]
     Indication: COMPLEX REGIONAL PAIN SYNDROME
     Dosage: 0.1 MG/HR, WEEKLY
     Route: 062
  7. GABAPENTIN [Concomitant]
     Indication: COMPLEX REGIONAL PAIN SYNDROME
     Dosage: UNK, DAILY
     Route: 048
  8. NORTRIPTYLINE [Concomitant]
     Indication: PAIN
     Dosage: UNK, UNK
     Route: 048
  9. AMITRIPTYLINE [Concomitant]
     Indication: PRODUCT USED FOR UNKNOWN INDICATION
     Dosage: 50 MG, UNK

REACTIONS (12)
  - Thrombosis [Unknown]
  - Angina pectoris [Not Recovered/Not Resolved]
  - Renal injury [Not Recovered/Not Resolved]
  - Liver injury [Not Recovered/Not Resolved]
  - Overdose [Recovered/Resolved]
  - Drug abuse [Unknown]
  - Chest discomfort [Unknown]
  - Urinary incontinence [Unknown]
  - Urine odour abnormal [Unknown]
  - Amenorrhoea [Recovered/Resolved]
  - Lethargy [Unknown]
  - Dysarthria [Unknown]
